FAERS Safety Report 9626352 (Version 1)
Quarter: 2013Q4

REPORT INFORMATION
  Report Type: Spontaneous
  Country: US (occurrence: None)
  Receive Date: 20131015
  Receipt Date: 20131015
  Transmission Date: 20140711
  Serious: Yes (Other)
  Sender: FDA-Public Use
  Company Number: None

PATIENT
  Age: 57 Year
  Sex: Female
  Weight: 78.02 kg

DRUGS (1)
  1. EQUATE COUGH DM [Suspect]
     Indication: BRONCHITIS
     Route: 048
     Dates: start: 20131012, end: 20131012

REACTIONS (3)
  - Insomnia [None]
  - Pruritus [None]
  - Paraesthesia [None]
